FAERS Safety Report 9157530 (Version 1)
Quarter: 2013Q1

REPORT INFORMATION
  Report Type: Spontaneous
  Country: US (occurrence: US)
  Receive Date: 20130311
  Receipt Date: 20130311
  Transmission Date: 20140127
  Serious: Yes (Other)
  Sender: FDA-Public Use
  Company Number: US-RB-050891-13

PATIENT
  Age: 19 Year
  Sex: Male

DRUGS (1)
  1. SUBOXONE FILM [Suspect]
     Indication: DRUG DEPENDENCE
     Dosage: VARIOUS DOSING
     Route: 060
     Dates: start: 201211, end: 20130225

REACTIONS (4)
  - Substance abuse [Recovered/Resolved]
  - Wrong technique in drug usage process [Recovered/Resolved]
  - Fall [Recovered/Resolved]
  - Lower limb fracture [Not Recovered/Not Resolved]
